FAERS Safety Report 8807129 (Version 2)
Quarter: 2012Q4

REPORT INFORMATION
  Report Type: 
  Country: US (occurrence: US)
  Receive Date: 20120925
  Receipt Date: 20121115
  Transmission Date: 20130627
  Serious: Yes (Hospitalization)
  Sender: FDA-Public Use
  Company Number: US-ASTRAZENECA-2012SE70942

PATIENT
  Age: 83 Year
  Sex: Male

DRUGS (3)
  1. NEXIUM [Suspect]
     Route: 048
  2. TOPROL XL [Suspect]
     Route: 048
  3. TOPROL XL [Suspect]
     Route: 048

REACTIONS (4)
  - Pneumonia [Unknown]
  - Fall [Unknown]
  - Excoriation [Unknown]
  - Malaise [Unknown]
